FAERS Safety Report 14088827 (Version 1)
Quarter: 2017Q4

REPORT INFORMATION
  Report Type: Spontaneous
  Country: US (occurrence: US)
  Receive Date: 20171013
  Receipt Date: 20171013
  Transmission Date: 20180321
  Serious: Yes (Other)
  Sender: FDA-Public Use
  Company Number: US-BAYER-2017-191617

PATIENT
  Age: 16 Year
  Sex: Male

DRUGS (1)
  1. HELIXATE FS [Suspect]
     Active Substance: ANTIHEMOPHILIC FACTOR, HUMAN RECOMBINANT
     Indication: FACTOR VIII DEFICIENCY
     Dosage: 1200 UNITS +/- 10% TIW
     Route: 042

REACTIONS (3)
  - Product supply issue [None]
  - Treatment noncompliance [None]
  - Traumatic haemorrhage [None]

NARRATIVE: CASE EVENT DATE: 201709
